FAERS Safety Report 21480956 (Version 1)
Quarter: 2022Q4

REPORT INFORMATION
  Report Type: Spontaneous
  Country: US (occurrence: US)
  Receive Date: 20221019
  Receipt Date: 20221019
  Transmission Date: 20230113
  Serious: Yes (Death, Other)
  Sender: FDA-Public Use
  Company Number: US-LUNDBECK-DKLU3053711

PATIENT
  Age: 32 Year
  Sex: Female

DRUGS (1)
  1. CLOBAZAM [Suspect]
     Active Substance: CLOBAZAM
     Indication: Seizure
     Route: 048

REACTIONS (7)
  - Cardiac arrest [Fatal]
  - Completed suicide [Fatal]
  - Intentional overdose [Fatal]
  - Brain injury [Fatal]
  - Hyponatraemia [Not Recovered/Not Resolved]
  - Pulmonary embolism [Not Recovered/Not Resolved]
  - Pneumonia necrotising [Not Recovered/Not Resolved]
